FAERS Safety Report 6897787-5 (Version None)
Quarter: 2010Q3

REPORT INFORMATION
  Report Type: 
  Country: None (occurrence: None)
  Receive Date: 20100802
  Receipt Date: 20070709
  Transmission Date: 20110219
  Serious: No
  Sender: FDA-Public Use
  Company Number: US-PFIZER INC-2007056821

PATIENT
  Sex: Female
  Weight: 83.5 kg

DRUGS (19)
  1. LYRICA [Suspect]
     Indication: FIBROMYALGIA
     Route: 048
     Dates: start: 20070501
  2. KLONOPIN [Concomitant]
  3. LORAZEPAM [Concomitant]
  4. NASONEX [Concomitant]
  5. VERAPAMIL [Concomitant]
  6. MS CONTIN [Concomitant]
  7. ALBUTEROL [Concomitant]
  8. SPIRIVA [Concomitant]
  9. PREVACID [Concomitant]
  10. COMPAZINE [Concomitant]
  11. ZENTEL [Concomitant]
  12. ELMIRON [Concomitant]
  13. ACTOS [Concomitant]
  14. MONTELUKAST SODIUM [Concomitant]
  15. LORTAB [Concomitant]
  16. HUMATROPE [Concomitant]
  17. CELEXA [Concomitant]
  18. ABILIFY [Concomitant]
  19. ALL OTHER THERAPEUTIC PRODUCTS [Concomitant]

REACTIONS (1)
  - MIGRAINE [None]
